FAERS Safety Report 6794982-0 (Version None)
Quarter: 2010Q2

REPORT INFORMATION
  Report Type: 
  Country: None (occurrence: None)
  Receive Date: 20100625
  Receipt Date: 20100616
  Transmission Date: 20101027
  Serious: Yes (Hospitalization)
  Sender: FDA-Public Use
  Company Number: US-CELGENEUS-163-C5013-10042013

PATIENT
  Sex: Male
  Weight: 114.86 kg

DRUGS (22)
  1. CC-5013 [Suspect]
     Indication: PROSTATE CANCER
     Route: 048
     Dates: start: 20100415, end: 20100422
  2. CC-5013 [Suspect]
     Route: 048
     Dates: start: 20100303
  3. CC-5013 [Suspect]
     Route: 048
     Dates: start: 20100426
  4. DOCETAXEL [Suspect]
     Indication: PROSTATE CANCER
     Route: 051
     Dates: start: 20100415, end: 20100415
  5. DOCETAXEL [Suspect]
     Route: 051
     Dates: start: 20100303, end: 20100303
  6. PREDNISONE [Suspect]
     Indication: PROSTATE CANCER
     Route: 048
     Dates: start: 20100415
  7. PREDNISONE [Suspect]
     Route: 048
     Dates: start: 20100303
  8. COUMADIN [Concomitant]
     Indication: PROPHYLAXIS
     Route: 065
  9. COUMADIN [Concomitant]
     Indication: ATRIAL FIBRILLATION
  10. ALLOPURINOL [Concomitant]
     Indication: DRUG USE FOR UNKNOWN INDICATION
     Route: 048
  11. CALCIUM + VITAMIN D3 [Concomitant]
     Indication: DRUG USE FOR UNKNOWN INDICATION
     Route: 048
  12. DILTIAZEM [Concomitant]
     Indication: DRUG USE FOR UNKNOWN INDICATION
     Route: 048
  13. DOXAZOSIN MESYLATE [Concomitant]
     Indication: DRUG USE FOR UNKNOWN INDICATION
     Route: 048
  14. FUROSEMIDE [Concomitant]
     Indication: DRUG USE FOR UNKNOWN INDICATION
     Route: 048
  15. ACETAMINOPHEN AND HYDROCODONE BITARTRATE [Concomitant]
     Indication: PAIN
     Dosage: 5MG-325MG
     Route: 048
  16. NIACIN [Concomitant]
     Indication: DRUG USE FOR UNKNOWN INDICATION
     Dosage: 500-141MG
     Route: 048
  17. VITAMIN B-12 [Concomitant]
     Indication: DRUG USE FOR UNKNOWN INDICATION
     Route: 048
  18. VITAMIN B6 [Concomitant]
     Indication: DRUG USE FOR UNKNOWN INDICATION
     Route: 048
  19. VITAMIN D3 [Concomitant]
     Indication: DRUG USE FOR UNKNOWN INDICATION
     Dosage: 2000 UNIT
     Route: 048
  20. WARFARIN [Concomitant]
     Indication: ATRIAL FIBRILLATION
     Route: 048
  21. DEXAMETHASONE [Concomitant]
     Indication: DRUG USE FOR UNKNOWN INDICATION
     Route: 051
  22. GRANISETRON HCL [Concomitant]
     Indication: DRUG USE FOR UNKNOWN INDICATION
     Route: 051

REACTIONS (3)
  - INTESTINAL OBSTRUCTION [None]
  - NEUTROPENIA [None]
  - URINE OUTPUT DECREASED [None]
